FAERS Safety Report 14934402 (Version 3)
Quarter: 2018Q2

REPORT INFORMATION
  Report Type: Report from Study
  Country: None (occurrence: TR)
  Receive Date: 20180524
  Receipt Date: 20180615
  Transmission Date: 20180711
  Serious: Yes (Hospitalization, Other)
  Sender: FDA-Public Use
  Company Number: TR-ABBVIE-18K-161-2365023-00

PATIENT
  Age: 75 Year
  Sex: Female

DRUGS (15)
  1. DUODOPA [Suspect]
     Active Substance: CARBIDOPA\LEVODOPA
     Dosage: MORNING DOSE(ML): 9.00?CONTINUOUS DOSE(ML): 4.10?EXTRA DOSE(ML): 1.00
     Route: 050
     Dates: start: 20180525, end: 20180525
  2. DUODOPA [Suspect]
     Active Substance: CARBIDOPA\LEVODOPA
     Dosage: MORNING DOSE(ML): 9.00?CONTINUOUS DOSE(ML): 4.40?EXTRA DOSE(ML): 1.00
     Route: 050
     Dates: start: 20180525
  3. CEDRINA [Concomitant]
     Indication: PARKINSON^S DISEASE
     Dosage: 1X1/2
     Route: 048
  4. STALEVO [Concomitant]
     Active Substance: CARBIDOPA\ENTACAPONE\LEVODOPA
     Indication: PARKINSON^S DISEASE
     Route: 048
     Dates: end: 20180502
  5. EBIXA [Concomitant]
     Active Substance: MEMANTINE HYDROCHLORIDE
     Indication: DEMENTIA
     Dosage: 1X3
     Route: 048
     Dates: start: 20160609
  6. DAFLON [Concomitant]
     Indication: EMBOLISM
     Route: 048
  7. COUMADIN [Concomitant]
     Active Substance: WARFARIN SODIUM
     Indication: EMBOLISM
     Dosage: 1X1.5
     Route: 048
     Dates: end: 20180517
  8. NEXIUM [Concomitant]
     Active Substance: ESOMEPRAZOLE MAGNESIUM
     Indication: PROPHYLAXIS
     Route: 048
  9. DETRUSITOL [Concomitant]
     Active Substance: TOLTERODINE TARTRATE
     Indication: URINARY INCONTINENCE
     Route: 048
  10. COUMADIN [Concomitant]
     Active Substance: WARFARIN SODIUM
     Route: 048
     Dates: start: 20180525
  11. ADALAT [Concomitant]
     Active Substance: NIFEDIPINE
     Indication: HYPERTENSION
     Route: 048
  12. DUODOPA [Suspect]
     Active Substance: CARBIDOPA\LEVODOPA
     Indication: PARKINSON^S DISEASE
     Dosage: MORNING DOSE(ML): 9.00?CONTINUOUS DOSE(ML): 3.70?EXTRA DOSE(ML): 1.00
     Route: 050
     Dates: start: 20160609, end: 20180525
  13. DUODOPA [Suspect]
     Active Substance: CARBIDOPA\LEVODOPA
     Dosage: MORNING: 9.0 ML?CONTINUOUS DOSE(ML):4.5 ML?EXTRA: 1.0 ML
     Route: 050
  14. OKSAPAR [Concomitant]
     Indication: EMBOLISM
     Route: 058
     Dates: start: 20180522, end: 20180525
  15. LEVOTIRON [Concomitant]
     Active Substance: LEVOTHYROXINE SODIUM
     Indication: GOITRE
     Route: 048

REACTIONS (10)
  - Abdominal distension [Recovered/Resolved]
  - Helicobacter infection [Unknown]
  - Balance disorder [Not Recovered/Not Resolved]
  - Dysphagia [Not Recovered/Not Resolved]
  - Bradykinesia [Not Recovered/Not Resolved]
  - Malnutrition [Recovered/Resolved]
  - Fall [Recovered/Resolved]
  - Weight decreased [Unknown]
  - Anal incontinence [Not Recovered/Not Resolved]
  - Gastric polyps [Not Recovered/Not Resolved]

NARRATIVE: CASE EVENT DATE: 2017
